FAERS Safety Report 7277360 (Version 4)
Quarter: 2013Q3

REPORT INFORMATION
  Report Type: Report from Study
  Country: NL (occurrence: NL)
  Receive Date: 20100212
  Receipt Date: 20130722
  Transmission Date: 20140515
  Serious: Yes (Death, Life-Threatening, Hospitalization)
  Sender: FDA-Public Use
  Company Number: NL-BAYER-201015287GPV

PATIENT
  Age: 62 Year
  Sex: Male

DRUGS (23)
  1. SORAFENIB (RAF KINASE INHIBITOR) [Suspect]
     Indication: RENAL CELL CARCINOMA
     Route: 048
     Dates: start: 20100118, end: 20100207
  2. PARACETAMOL [Concomitant]
     Dosage: 4 G (DAILY DOSE), ,
     Dates: start: 200912, end: 20100208
  3. DUROGESIC [Concomitant]
     Dosage: 12 MCG/U
     Route: 062
     Dates: start: 20091228, end: 20100104
  4. DUROGESIC [Concomitant]
     Dosage: 12 MCG/U
     Route: 062
     Dates: start: 20091231, end: 20100104
  5. DUROGESIC [Concomitant]
     Dosage: 50 MCG/U
     Route: 062
     Dates: start: 20100104, end: 20100115
  6. DUROGESIC [Concomitant]
     Dosage: 50 MCG/U
     Route: 062
     Dates: start: 20100203, end: 20100208
  7. LACTULOSE [Concomitant]
     Dosage: 15 ML, BID
     Route: 065
     Dates: start: 200912, end: 20100208
  8. LISINOPRIL [Concomitant]
     Dosage: 10 MG (DAILY DOSE), , UNKNOWN
     Route: 065
     Dates: start: 200912, end: 20100208
  9. LISINOPRIL [Concomitant]
     Dosage: 10 MG (DAILY DOSE), , ORAL
     Route: 048
     Dates: start: 20100203, end: 20100208
  10. LISINOPRIL [Concomitant]
     Dosage: 10 MG (DAILY DOSE), , ORAL
     Route: 048
     Dates: start: 20100107, end: 20100115
  11. DEXAMETHASON [Concomitant]
     Dosage: 1.5 MG (DAILY DOSE), ,
     Dates: start: 200912, end: 20100207
  12. DEXAMETHASON [Concomitant]
     Route: 048
     Dates: start: 20100107, end: 20100114
  13. DEXAMETHASON [Concomitant]
     Route: 048
     Dates: start: 20100114, end: 20100115
  14. DEXAMETHASON [Concomitant]
     Dosage: 1.5 MG (DAILY DOSE), , ORAL
     Route: 048
     Dates: start: 20100204, end: 20100205
  15. OXYNORM [Concomitant]
     Dosage: 40 MG (DAILY DOSE), ,
     Dates: start: 200912, end: 20100208
  16. OXAZEPAM [Concomitant]
     Dosage: 10 MG (DAILY DOSE), ,
     Dates: start: 200912, end: 20100208
  17. OMEPRAZOL [Concomitant]
     Dosage: 40 MG (DAILY DOSE), ,
     Dates: start: 200912, end: 20100208
  18. GLUCOZIDE [Concomitant]
     Dosage: UNK
     Dates: start: 200912, end: 20100208
  19. NORVASC [Concomitant]
     Dosage: 1 DF (DAILY DOSE), QD, ORAL
     Route: 048
     Dates: start: 20100206, end: 20100206
  20. NORVASC [Concomitant]
     Dosage: 1 DF (DAILY DOSE), QD, ORAL
     Route: 048
     Dates: start: 20100208, end: 20100208
  21. PREDNISOLON [Concomitant]
     Route: 042
     Dates: start: 20100205, end: 20100206
  22. METFORMIN [Concomitant]
     Dosage: 500 MG (DAILY DOSE), , ORAL
     Route: 048
     Dates: start: 20100203, end: 20100204
  23. METFORMIN [Concomitant]
     Dosage: 850 MG (DAILY DOSE), , ORAL
     Route: 048
     Dates: start: 20100203, end: 20100204

REACTIONS (5)
  - Thrombocytopenia [Not Recovered/Not Resolved]
  - Cardiopulmonary failure [Fatal]
  - Hemiparesis [Not Recovered/Not Resolved]
  - Aphasia [Not Recovered/Not Resolved]
  - Chest pain [Fatal]
